FAERS Safety Report 8811140 (Version 1)
Quarter: 2012Q4

REPORT INFORMATION
  Report Type: Spontaneous
  Country: US (occurrence: None)
  Receive Date: 20120925
  Receipt Date: 20120925
  Transmission Date: 20130627
  Serious: No
  Sender: FDA-Public Use
  Company Number: None

PATIENT
  Age: 70 Year
  Weight: 77.11 kg

DRUGS (1)
  1. ZOLOFT [Suspect]
     Indication: ANXIETY
     Dosage: 25 MG 1 PER DAY
     Dates: start: 20120902, end: 20120907

REACTIONS (1)
  - Skin burning sensation [None]
